FAERS Safety Report 17257464 (Version 2)
Quarter: 2020Q1

REPORT INFORMATION
  Report Type: Spontaneous
  Country: FR (occurrence: FR)
  Receive Date: 20200110
  Receipt Date: 20200127
  Transmission Date: 20200409
  Serious: Yes (Death, Other)
  Sender: FDA-Public Use
  Company Number: PHHY2018FR080532

PATIENT
  Age: 22 Year
  Sex: Female

DRUGS (1)
  1. PARACETAMOL [Suspect]
     Active Substance: ACETAMINOPHEN
     Indication: ABDOMINAL PAIN
     Dosage: UNK
     Route: 065

REACTIONS (6)
  - Toxicity to various agents [Fatal]
  - Hepatocellular injury [Fatal]
  - Drug-induced liver injury [Fatal]
  - Multiple organ dysfunction syndrome [Fatal]
  - Death [Fatal]
  - Pain in extremity [Fatal]

NARRATIVE: CASE EVENT DATE: 201712
